FAERS Safety Report 14102631 (Version 1)
Quarter: 2017Q4

REPORT INFORMATION
  Report Type: Spontaneous
  Country: US (occurrence: US)
  Receive Date: 20171018
  Receipt Date: 20171018
  Transmission Date: 20180321
  Serious: No
  Sender: FDA-Public Use
  Company Number: US-ENDO PHARMACEUTICALS INC-2017-003831

PATIENT
  Age: 86 Year
  Sex: Female

DRUGS (1)
  1. VALSTAR [Suspect]
     Active Substance: VALRUBICIN
     Indication: BLADDER CANCER RECURRENT
     Dosage: UNK UNK, INSTILLED 120 ML INTO BLADDER ONE TIME
     Route: 065
     Dates: start: 201702

REACTIONS (4)
  - Incorrect product formulation administered [Recovered/Resolved]
  - Urge incontinence [Recovered/Resolved]
  - Bladder instillation procedure [Recovered/Resolved]
  - Underdose [Recovered/Resolved]

NARRATIVE: CASE EVENT DATE: 201702
